FAERS Safety Report 10152160 (Version 1)
Quarter: 2014Q2

REPORT INFORMATION
  Report Type: Spontaneous
  Country: GB (occurrence: None)
  Receive Date: 20140501
  Receipt Date: 20140501
  Transmission Date: 20141212
  Serious: Yes (Life-Threatening)
  Sender: FDA-Public Use
  Company Number: GB-GAMBRO-TW1616949

PATIENT
  Age: 68 Year
  Sex: Female

DRUGS (1)
  1. HEMOSOL BO [Suspect]
     Indication: PRODUCT USED FOR UNKNOWN INDICATION
     Dosage: DOSAGE: UNSPECIFIED UNIT, UNSPECIFIED INTERVAL
     Dates: start: 20140409

REACTIONS (2)
  - Blood potassium increased [None]
  - Cardiac arrest [None]
